FAERS Safety Report 18757082 (Version 1)
Quarter: 2021Q1

REPORT INFORMATION
  Report Type: Report from Study
  Country: BR (occurrence: BR)
  Receive Date: 20210119
  Receipt Date: 20210119
  Transmission Date: 20210419
  Serious: Yes (Hospitalization)
  Sender: FDA-Public Use
  Company Number: NVSC2021BR009903

PATIENT
  Sex: Male

DRUGS (1)
  1. CO?DIOVAN [Suspect]
     Active Substance: HYDROCHLOROTHIAZIDE\VALSARTAN
     Indication: HYPERTENSION
     Dosage: QD
     Route: 065

REACTIONS (4)
  - Eschar [Unknown]
  - Pain in extremity [Unknown]
  - COVID-19 [Recovered/Resolved with Sequelae]
  - Gait disturbance [Unknown]
